FAERS Safety Report 19996952 (Version 1)
Quarter: 2021Q4

REPORT INFORMATION
  Report Type: Spontaneous
  Country: FI (occurrence: FI)
  Receive Date: 20211026
  Receipt Date: 20211026
  Transmission Date: 20220303
  Serious: Yes (Other)
  Sender: FDA-Public Use
  Company Number: FI-BAYER-2021A233047

PATIENT
  Age: 25 Year
  Sex: Female

DRUGS (4)
  1. KYLEENA [Suspect]
     Active Substance: LEVONORGESTREL
     Dosage: 17.5 ?G, CONT
     Route: 015
     Dates: start: 20211015
  2. OXAZEPAM [Concomitant]
     Active Substance: OXAZEPAM
     Indication: Sedative therapy
  3. VITAMIN D NOS [Concomitant]
     Active Substance: VITAMIN D NOS
  4. OMEGA-3 FATTY ACIDS [Concomitant]
     Active Substance: OMEGA-3 FATTY ACIDS

REACTIONS (5)
  - Self-destructive behaviour [None]
  - Tearfulness [None]
  - Mood altered [None]
  - Anger [None]
  - Crying [None]

NARRATIVE: CASE EVENT DATE: 20211015
